FAERS Safety Report 15396273 (Version 2)
Quarter: 2018Q3

REPORT INFORMATION
  Report Type: Report from Study
  Country: CO (occurrence: CO)
  Receive Date: 20180918
  Receipt Date: 20180919
  Transmission Date: 20181010
  Serious: Yes (Hospitalization)
  Sender: FDA-Public Use
  Company Number: CO-ASTRAZENECA-2018SF19048

PATIENT
  Age: 21288 Day
  Sex: Male

DRUGS (1)
  1. BRILINTA [Suspect]
     Active Substance: TICAGRELOR
     Route: 048
     Dates: start: 20170508

REACTIONS (1)
  - Vascular catheterisation [Recovering/Resolving]

NARRATIVE: CASE EVENT DATE: 20180505
